FAERS Safety Report 5301427-6 (Version None)
Quarter: 2007Q2

REPORT INFORMATION
  Report Type: 
  Country: None (occurrence: None)
  Receive Date: 20070418
  Receipt Date: 20070406
  Transmission Date: 20071010
  Serious: Yes (Other)
  Sender: FDA-Public Use
  Company Number: US-PFIZER INC-2007017052

PATIENT
  Sex: Male
  Weight: 79.4 kg

DRUGS (9)
  1. LIPITOR [Suspect]
     Indication: BLOOD CHOLESTEROL INCREASED
     Route: 048
  2. LIPITOR [Suspect]
     Indication: CORONARY ARTERY DISEASE
  3. ZETIA [Concomitant]
  4. NORVASC [Concomitant]
  5. HYDROCHLOROTHIAZIDE [Concomitant]
  6. ATENOLOL [Concomitant]
  7. PLAVIX [Concomitant]
  8. ACETYLSALICYLIC ACID SRT [Concomitant]
  9. PRILOSEC [Concomitant]

REACTIONS (13)
  - BILE DUCT CANCER [None]
  - BILE DUCT STENOSIS [None]
  - BILE DUCT STONE [None]
  - BILIARY TRACT DISORDER [None]
  - BLOOD ALKALINE PHOSPHATASE INCREASED [None]
  - CHOLANGIOLITIS [None]
  - CHOLANGITIS [None]
  - CHOLECYSTECTOMY [None]
  - CHOLELITHIASIS [None]
  - FEELING ABNORMAL [None]
  - GALLBLADDER OPERATION [None]
  - MALAISE [None]
  - PYREXIA [None]
